FAERS Safety Report 15203782 (Version 3)
Quarter: 2018Q3

REPORT INFORMATION
  Report Type: Report from Study
  Country: CZ (occurrence: CZ)
  Receive Date: 20180726
  Receipt Date: 20180810
  Transmission Date: 20181010
  Serious: Yes (Hospitalization)
  Sender: FDA-Public Use
  Company Number: CZ-PFIZER INC-2018290354

PATIENT
  Age: 73 Year
  Sex: Male
  Weight: 109 kg

DRUGS (12)
  1. URSOFALK [Concomitant]
     Active Substance: URSODIOL
     Indication: PROPHYLAXIS
     Dosage: 500 MG, 2X/DAY
     Route: 048
     Dates: start: 201603
  2. FINPROS [Concomitant]
     Indication: BENIGN PROSTATIC HYPERPLASIA
     Dosage: 5 MG, 1X/DAY
     Route: 048
     Dates: start: 2015
  3. TANYZ [Concomitant]
     Active Substance: TAMSULOSIN HYDROCHLORIDE
     Indication: BENIGN PROSTATIC HYPERPLASIA
     Dosage: 0.4 MG, 1X/DAY
     Route: 048
     Dates: start: 2015
  4. WARFARIN [Concomitant]
     Active Substance: WARFARIN
     Indication: ATRIAL FIBRILLATION
     Dosage: 5 MG, AS NEEDED
     Route: 048
     Dates: start: 2013, end: 20180522
  5. KREON [Concomitant]
     Active Substance: PANCRELIPASE
     Indication: PANCREATIC FAILURE
     Dosage: 25000 MG, 3X/DAY
     Route: 048
     Dates: start: 201401
  6. LIPANTHYL S [Concomitant]
     Indication: DYSLIPIDAEMIA
     Dosage: 215 MG, 1X/DAY
     Route: 048
     Dates: start: 2015
  7. ALLOPURINOL. [Concomitant]
     Active Substance: ALLOPURINOL
     Indication: HYPERURICAEMIA
     Dosage: 100 MG, 1X/DAY
     Route: 048
     Dates: start: 2016
  8. JANUVIA [Concomitant]
     Active Substance: SITAGLIPTIN PHOSPHATE
     Indication: DIABETES MELLITUS
     Dosage: 100 MG, 1X/DAY
     Route: 048
     Dates: start: 201701
  9. FURON /00032601/ [Concomitant]
     Active Substance: FUROSEMIDE
     Indication: PULMONARY ARTERIAL HYPERTENSION
     Dosage: 100 MG, 1X/DAY
     Route: 048
     Dates: start: 201710, end: 201806
  10. SILDENAFIL CITRATE. [Suspect]
     Active Substance: SILDENAFIL CITRATE
     Indication: PULMONARY HYPERTENSION
     Dosage: UNK UNK, 3X/DAY
     Route: 048
     Dates: start: 20180420
  11. CONTROLOC [Concomitant]
     Active Substance: PANTOPRAZOLE SODIUM
     Indication: PROPHYLAXIS
     Dosage: 40 MG, 1X/DAY
     Route: 048
     Dates: start: 201603
  12. VOLIBRIS [Concomitant]
     Active Substance: AMBRISENTAN
     Indication: PULMONARY ARTERIAL HYPERTENSION
     Dosage: 5 MG, 1X/DAY
     Route: 048
     Dates: start: 20171128

REACTIONS (1)
  - Hypochromic anaemia [Recovered/Resolved]

NARRATIVE: CASE EVENT DATE: 20180522
